FAERS Safety Report 18480560 (Version 1)
Quarter: 2020Q4

REPORT INFORMATION
  Report Type: Spontaneous
  Country: JP (occurrence: JP)
  Receive Date: 20201109
  Receipt Date: 20201109
  Transmission Date: 20210114
  Serious: Yes (Hospitalization)
  Sender: FDA-Public Use
  Company Number: JP-CELGENEUS-JPN-20201100705

PATIENT
  Age: 69 Year
  Sex: Male

DRUGS (1)
  1. ISTODAX [Suspect]
     Active Substance: ROMIDEPSIN
     Indication: PERIPHERAL T-CELL LYMPHOMA UNSPECIFIED
     Dosage: UNKNOWN
     Route: 041
     Dates: start: 2020, end: 2020

REACTIONS (1)
  - Obstructive airways disorder [Recovering/Resolving]

NARRATIVE: CASE EVENT DATE: 20200928
